FAERS Safety Report 24539866 (Version 1)
Quarter: 2024Q4

REPORT INFORMATION
  Report Type: Spontaneous
  Country: US (occurrence: None)
  Receive Date: 20241022
  Receipt Date: 20241022
  Transmission Date: 20250115
  Serious: Yes (Life-Threatening, Disabling, Other)
  Sender: Public
  Company Number: None

PATIENT
  Age: 33 Year
  Sex: Female

DRUGS (1)
  1. LORAZEPAM [Suspect]
     Active Substance: LORAZEPAM

REACTIONS (8)
  - Emotional distress [None]
  - Manufacturing product shipping issue [None]
  - Panic attack [None]
  - Product dose omission in error [None]
  - Flashback [None]
  - Mood swings [None]
  - Affect lability [None]
  - Job dissatisfaction [None]

NARRATIVE: CASE EVENT DATE: 20241007
